FAERS Safety Report 25644135 (Version 1)
Quarter: 2025Q3

REPORT INFORMATION
  Report Type: Other
  Country: EU (occurrence: EU)
  Receive Date: 20250805
  Receipt Date: 20250805
  Transmission Date: 20251020
  Serious: Yes (Death, Other)
  Sender: ANI
  Company Number: EU-ANIPHARMA-023958

PATIENT
  Age: 44 Year
  Sex: Male

DRUGS (1)
  1. TERBUTALINE [Suspect]
     Active Substance: TERBUTALINE
     Indication: Product used for unknown indication

REACTIONS (1)
  - Cardiotoxicity [Fatal]
